FAERS Safety Report 9290405 (Version 1)
Quarter: 2012Q4

REPORT INFORMATION
  Report Type: Spontaneous
  Country: US (occurrence: None)
  Receive Date: 20121005
  Receipt Date: 20121005
  Transmission Date: 20130627
  Serious: Yes (Disabling, Other)
  Sender: FDA-Public Use
  Company Number: 2011MA004151

PATIENT
  Sex: Male
  Weight: 84.82 kg

DRUGS (40)
  1. METOCLOPRAMIDE TABLETS USP, 10 MG (PUREPAC) [Suspect]
     Indication: GASTROENTERITIS
     Dates: start: 20070916, end: 200801
  2. AMPHETAMINE [Concomitant]
  3. DEXTROAMPHETAMIKNE MIXED SALTS [Concomitant]
  4. ANDOGREL [Concomitant]
  5. BACTROBAN [Concomitant]
  6. BEXTRA [Concomitant]
  7. BUPROPION XL [Concomitant]
  8. CELEBREX [Concomitant]
  9. CLARINEX [Concomitant]
  10. COREG [Concomitant]
  11. FINACEA [Concomitant]
  12. FLECAINIDE [Concomitant]
  13. FLOMAX [Concomitant]
  14. FLUTICASONE [Concomitant]
  15. FLUZONE [Concomitant]
  16. LEVAQUIN [Concomitant]
  17. LIDOCAINE [Concomitant]
  18. MEGA -3 FATTY ACIDS [Concomitant]
  19. METRONIDAZOLE [Concomitant]
  20. NEXIUM [Concomitant]
  21. POLYETHILENE GLUCOL [Concomitant]
  22. PRILOSEC [Concomitant]
  23. PROCTOCORT [Concomitant]
  24. PROCTOSOL-HC [Concomitant]
  25. PROCTOZONE-HC [Concomitant]
  26. PROMETHAZINE [Concomitant]
  27. PROZAC [Concomitant]
  28. QUINAPRIL [Concomitant]
  29. SIMVASTATIN [Concomitant]
  30. STRATTERA [Concomitant]
  31. TESTOSTERONE [Concomitant]
  32. TESTOSTERONE CYPIONATE [Concomitant]
  33. TRAZODONE [Concomitant]
  34. VALTREX [Concomitant]
  35. VYTORIN [Concomitant]
  36. WARFARIN [Concomitant]
  37. JANTOVEN [Concomitant]
  38. ZETIA [Concomitant]
  39. ZYMAR [Concomitant]
  40. ZYRTEC [Concomitant]

REACTIONS (13)
  - Dystonia [None]
  - Tremor [None]
  - Parkinsonism [None]
  - Injury [None]
  - Emotional disorder [None]
  - Economic problem [None]
  - Hyperlipidaemia [None]
  - Musculoskeletal pain [None]
  - Tendonitis [None]
  - Low density lipoprotein increased [None]
  - Restless legs syndrome [None]
  - Muscle spasms [None]
  - Memory impairment [None]
